FAERS Safety Report 5127924-4 (Version None)
Quarter: 2006Q4

REPORT INFORMATION
  Report Type: 
  Country: None (occurrence: None)
  Receive Date: 20061011
  Receipt Date: 20060926
  Transmission Date: 20070319
  Serious: Yes (Hospitalization)
  Sender: FDA-Public Use
  Company Number: A-CH2006-12552

PATIENT
  Age: 61 Year
  Sex: Female

DRUGS (3)
  1. TRACLEER [Suspect]
     Indication: PULMONARY HYPERTENSION
     Dosage: SEE IMAGE, ORAL
     Route: 048
     Dates: end: 20060601
  2. TRACLEER [Suspect]
     Indication: PULMONARY HYPERTENSION
     Dosage: SEE IMAGE, ORAL
     Route: 048
     Dates: start: 20060101
  3. ORAL ANTIGOAGULANTS [Concomitant]

REACTIONS (9)
  - ASCITES [None]
  - BREAST CANCER RECURRENT [None]
  - CARDIAC FAILURE [None]
  - DRUG INEFFECTIVE [None]
  - LOCALISED OEDEMA [None]
  - OEDEMA PERIPHERAL [None]
  - OFF LABEL USE [None]
  - POST PROCEDURAL HAEMATOMA [None]
  - TRANSAMINASES INCREASED [None]
